FAERS Safety Report 9774989 (Version 3)
Quarter: 2014Q2

REPORT INFORMATION
  Report Type: Spontaneous
  Country: US (occurrence: US)
  Receive Date: 20131220
  Receipt Date: 20140417
  Transmission Date: 20141212
  Serious: Yes (Hospitalization)
  Sender: FDA-Public Use
  Company Number: US-BAYER-2013-154357

PATIENT
  Age: 44 Year
  Sex: Female
  Weight: 99.77 kg

DRUGS (17)
  1. MIRENA [Suspect]
     Indication: CONTRACEPTION
     Dosage: 20 MCG/24HR, CONT
     Route: 015
     Dates: start: 20101112, end: 20101116
  2. MIRENA [Suspect]
     Indication: MENSTRUAL CYCLE MANAGEMENT
  3. IBUPROFEN [IBUPROFEN] [Concomitant]
     Indication: BACK PAIN
     Dosage: UNK
     Dates: start: 199811
  4. IBUPROFEN [IBUPROFEN] [Concomitant]
     Indication: ARTHRALGIA
  5. IBUPROFEN [IBUPROFEN] [Concomitant]
     Indication: DYSPEPSIA
  6. IBUPROFEN [IBUPROFEN] [Concomitant]
     Indication: PALPITATIONS
  7. HYDROCODONE [Concomitant]
     Indication: BACK PAIN
     Dosage: UNK
     Dates: start: 199811
  8. HYDROCODONE [Concomitant]
     Indication: ARTHRALGIA
  9. HYDROCODONE [Concomitant]
     Indication: DYSPEPSIA
  10. HYDROCODONE [Concomitant]
     Indication: PALPITATIONS
  11. ATENOLOL [Concomitant]
     Indication: BACK PAIN
     Dosage: UNK
     Dates: start: 199811
  12. ATENOLOL [Concomitant]
     Indication: ARTHRALGIA
  13. ATENOLOL [Concomitant]
     Indication: DYSPEPSIA
  14. ATENOLOL [Concomitant]
     Indication: PALPITATIONS
  15. OMEPRAZOLE [Concomitant]
  16. RECLIPSEN [Concomitant]
  17. CYCLOBENZAPRINE [Concomitant]
     Indication: MUSCLE SPASMS
     Dosage: 10 MG, UNK
     Dates: start: 20101101

REACTIONS (6)
  - Uterine perforation [None]
  - Scar [None]
  - Medical device discomfort [None]
  - Medical device pain [None]
  - Device issue [None]
  - Injury [None]
